FAERS Safety Report 8609263 (Version 9)
Quarter: 2012Q4

REPORT INFORMATION
  Report Type: 
  Country: CA (occurrence: CA)
  Receive Date: 20120611
  Receipt Date: 20121203
  Transmission Date: 20130627
  Serious: Yes (Hospitalization, Other)
  Sender: FDA-Public Use
  Company Number: PHHY2010CA19788

PATIENT
  Age: 47 None
  Sex: Male
  Weight: 129 kg

DRUGS (11)
  1. XOLAIR [Suspect]
     Indication: ASTHMA
     Dosage: 375 mg, BIW
     Route: 058
     Dates: start: 20100329
  2. XOLAIR [Suspect]
     Dosage: 375 mg, BIW
     Route: 058
     Dates: start: 20100412
  3. METHADONE [Suspect]
  4. RAMIPRIL [Concomitant]
  5. APO-GABAPENTIN [Concomitant]
  6. CYMBALTA [Concomitant]
  7. DOCUSATE SODIUM [Concomitant]
  8. ADVAIR [Concomitant]
  9. UNIPHYL [Concomitant]
  10. SENNOSIDES A+B [Concomitant]
  11. FLOMAX [Concomitant]

REACTIONS (28)
  - Meningitis [Unknown]
  - Headache [Unknown]
  - Incision site infection [Unknown]
  - Lung infection [Unknown]
  - Sputum discoloured [Unknown]
  - Productive cough [Unknown]
  - Oedema peripheral [Recovered/Resolved]
  - Convulsion [Recovering/Resolving]
  - Eyelid oedema [Recovering/Resolving]
  - Influenza [Recovered/Resolved]
  - Feeling hot [Unknown]
  - Hyperhidrosis [Unknown]
  - Respiratory disorder [Unknown]
  - Cough [Unknown]
  - Sinusitis [Unknown]
  - Nasal congestion [Unknown]
  - Facial pain [Unknown]
  - Rhinorrhoea [Unknown]
  - Sinus headache [Unknown]
  - Decreased activity [Unknown]
  - Nasopharyngitis [Unknown]
  - Respiration abnormal [Unknown]
  - Hypersomnia [Unknown]
  - Wound [Unknown]
  - Insomnia [Unknown]
  - Pain in extremity [Unknown]
  - Fatigue [Unknown]
  - Infection [Unknown]
